FAERS Safety Report 21965453 (Version 4)
Quarter: 2024Q1

REPORT INFORMATION
  Report Type: Spontaneous
  Country: IT (occurrence: IT)
  Receive Date: 20230208
  Receipt Date: 20240204
  Transmission Date: 20240410
  Serious: Yes (Other)
  Sender: FDA-Public Use
  Company Number: IT-BRISTOL-MYERS SQUIBB COMPANY-2023-015968

PATIENT
  Age: 16 Year
  Sex: Male

DRUGS (4)
  1. AZACITIDINE [Suspect]
     Active Substance: AZACITIDINE
     Indication: Acute myeloid leukaemia
     Dosage: 125 MG/DAY FOR 7 DAYS
  2. AZACITIDINE [Suspect]
     Active Substance: AZACITIDINE
     Indication: Acute myeloid leukaemia recurrent
  3. VENETOCLAX [Suspect]
     Active Substance: VENETOCLAX
     Indication: Acute myeloid leukaemia recurrent
     Dosage: FOR 28 DAYS
  4. VENETOCLAX [Suspect]
     Active Substance: VENETOCLAX
     Dosage: FREQUENCY FOR 28 DAYS, GRADUALLY INCREASED BY 100 MG/DAY UP TO A DOSE OF 800 MG/DAY

REACTIONS (8)
  - Urticaria [Recovered/Resolved]
  - Stenotrophomonas infection [Unknown]
  - Staphylococcal sepsis [Unknown]
  - Escherichia sepsis [Unknown]
  - Diarrhoea [Unknown]
  - Oedema peripheral [Unknown]
  - Stomatitis [Unknown]
  - Fluid retention [Recovered/Resolved]
